FAERS Safety Report 10467900 (Version 1)
Quarter: 2014Q3

REPORT INFORMATION
  Report Type: Spontaneous
  Country: CA (occurrence: CA)
  Receive Date: 20140922
  Receipt Date: 20140922
  Transmission Date: 20150326
  Serious: Yes (Other)
  Sender: FDA-Public Use
  Company Number: CA-PFIZER INC-2014255860

PATIENT
  Age: 55 Year
  Sex: Female

DRUGS (7)
  1. CLINDAMYCIN PHOSPHATE. [Suspect]
     Active Substance: CLINDAMYCIN PHOSPHATE
     Dosage: 30 MG, 1X/DAY
     Route: 065
  2. QUETIAPINE [Concomitant]
     Active Substance: QUETIAPINE
  3. BENADRYL [Concomitant]
     Active Substance: DIPHENHYDRAMINE HYDROCHLORIDE
  4. CLINDAMYCIN [Suspect]
     Active Substance: CLINDAMYCIN\CLINDAMYCIN PHOSPHATE
     Dosage: 30 MG, 1X/DAY
     Route: 048
  5. APO-PREDNISONE [Concomitant]
     Active Substance: PREDNISONE
  6. CETIRIZINE [Concomitant]
     Active Substance: CETIRIZINE HYDROCHLORIDE
  7. SYNTHROID [Concomitant]
     Active Substance: LEVOTHYROXINE SODIUM

REACTIONS (6)
  - Dizziness [Unknown]
  - Rash [Unknown]
  - Loss of consciousness [Unknown]
  - Skin burning sensation [Unknown]
  - Product contamination chemical [Unknown]
  - Diarrhoea [Unknown]
